FAERS Safety Report 5549001-0 (Version None)
Quarter: 2007Q4

REPORT INFORMATION
  Report Type: 
  Country: None (occurrence: None)
  Receive Date: 20071211
  Receipt Date: 20070412
  Transmission Date: 20080405
  Serious: No
  Sender: FDA-Public Use
  Company Number: US-AMGEN-KDL219431

PATIENT
  Sex: Female

DRUGS (2)
  1. ENBREL [Suspect]
     Indication: RHEUMATOID ARTHRITIS
     Route: 058
     Dates: start: 20070323
  2. PLAQUENIL [Concomitant]
     Dates: start: 20070101

REACTIONS (3)
  - DIZZINESS [None]
  - PALLOR [None]
  - VERTIGO [None]
